FAERS Safety Report 17025013 (Version 1)
Quarter: 2019Q4

REPORT INFORMATION
  Report Type: Spontaneous
  Country: ES (occurrence: ES)
  Receive Date: 20191113
  Receipt Date: 20191113
  Transmission Date: 20200122
  Serious: Yes (Congenital Anomaly)
  Sender: FDA-Public Use
  Company Number: ES-HORIZON-PRE-0499-2019

PATIENT
  Age: 40 Week
  Sex: Female
  Weight: 9.6 kg

DRUGS (7)
  1. ADIRO 100 [Concomitant]
     Active Substance: ASPIRIN
     Dosage: 100MG DAILY
     Route: 064
     Dates: start: 201804
  2. DOLQUINE 200 MG [Concomitant]
     Dosage: 200MG EVERY 12HOURS
     Route: 064
     Dates: start: 201804
  3. EUTIROX 50 MG [Concomitant]
     Dosage: 50MCG DAILY
     Route: 064
     Dates: start: 201805, end: 201810
  4. CHOLECALCIFEROL (36A) [Concomitant]
     Dosage: 400IU INTERNATIONAL UNITS DAILY
     Route: 064
     Dates: start: 201804
  5. INNOHEP 12.000 UI ANTI-XA/0,6 ML [Concomitant]
     Dosage: 6000 IU INTERNATIONAL UNITS
     Route: 064
     Dates: start: 20180524
  6. PREDNISONE. [Suspect]
     Active Substance: PREDNISONE
     Indication: PRODUCT USED FOR UNKNOWN INDICATION
     Dosage: 10MG DAILY
     Route: 064
     Dates: start: 20180530, end: 20180712
  7. CLEXANE 10.000 UI (100 MG)/ 1 ML [Concomitant]
     Route: 064
     Dates: start: 201804, end: 20180523

REACTIONS (2)
  - Cleft palate [Not Recovered/Not Resolved]
  - Foetal exposure during pregnancy [Recovered/Resolved]

NARRATIVE: CASE EVENT DATE: 20190117
